FAERS Safety Report 24944080 (Version 1)
Quarter: 2025Q1

REPORT INFORMATION
  Report Type: Report from Study
  Country: US (occurrence: US)
  Receive Date: 20250207
  Receipt Date: 20250207
  Transmission Date: 20250409
  Serious: Yes (Other)
  Sender: AIMMUNE
  Company Number: US-AIMMUNE THERAPEUTICS, INC.-2024AIMT01568

PATIENT

DRUGS (7)
  1. VOWST [Suspect]
     Active Substance: DONOR HUMAN STOOL SPORES (ETHANOL TREATED)
     Indication: Clostridium difficile infection
     Dosage: 4 CAPSULES, 1X/DAY
     Route: 048
     Dates: start: 202411, end: 202411
  2. VOWST [Suspect]
     Active Substance: DONOR HUMAN STOOL SPORES (ETHANOL TREATED)
     Route: 048
     Dates: start: 202411, end: 202411
  3. ANDROGEL [Concomitant]
     Active Substance: TESTOSTERONE
     Indication: Androgen replacement therapy
  4. KLONOPIN [Concomitant]
     Active Substance: CLONAZEPAM
     Indication: Anxiety
  5. METOPROLOL [Concomitant]
     Active Substance: METOPROLOL
     Indication: Atrial fibrillation
  6. ELIQUIS [Concomitant]
     Active Substance: APIXABAN
     Indication: Product used for unknown indication
  7. PEPCID COMPLETE [Concomitant]
     Active Substance: CALCIUM CARBONATE\FAMOTIDINE\MAGNESIUM HYDROXIDE
     Indication: Dyspepsia

REACTIONS (22)
  - Suicidal ideation [Recovered/Resolved]
  - Feeling abnormal [Unknown]
  - Sleep disorder [Unknown]
  - Malaise [Unknown]
  - Dizziness [Unknown]
  - Pain [Unknown]
  - Decreased appetite [Unknown]
  - Depression [Not Recovered/Not Resolved]
  - Dyspepsia [Not Recovered/Not Resolved]
  - Gastrooesophageal reflux disease [Not Recovered/Not Resolved]
  - Respiratory symptom [Recovered/Resolved]
  - Faeces soft [Unknown]
  - Irritable bowel syndrome [Unknown]
  - Clostridium test positive [Unknown]
  - Anger [Recovered/Resolved]
  - Frustration tolerance decreased [Recovered/Resolved]
  - Flatulence [Not Recovered/Not Resolved]
  - Frequent bowel movements [Unknown]
  - Chills [Unknown]
  - Fatigue [Unknown]
  - Diarrhoea [Not Recovered/Not Resolved]
  - Constipation [Unknown]

NARRATIVE: CASE EVENT DATE: 20241101
